FAERS Safety Report 4431145-8 (Version None)
Quarter: 2004Q3

REPORT INFORMATION
  Report Type: 
  Country: None (occurrence: None)
  Receive Date: 20040823
  Receipt Date: 20040823
  Transmission Date: 20050211
  Serious: Yes (Life-Threatening, Hospitalization)
  Sender: FDA-Public Use
  Company Number: None

PATIENT
  Age: 60 Year
  Sex: Male
  Weight: 120.2032 kg

DRUGS (1)
  1. AVANDIA [Suspect]
     Dosage: DAILY

REACTIONS (3)
  - JAUNDICE [None]
  - NASOPHARYNGITIS [None]
  - URINARY TRACT INFECTION [None]
